FAERS Safety Report 5566516-X (Version None)
Quarter: 2007Q4

REPORT INFORMATION
  Report Type: 
  Country: None (occurrence: None)
  Receive Date: 20071219
  Receipt Date: 20071204
  Transmission Date: 20080405
  Serious: Yes (Hospitalization, Other)
  Sender: FDA-Public Use
  Company Number: US-BAYER-US-2007-032138

PATIENT
  Age: 48 Year
  Sex: Female
  Weight: 65 kg

DRUGS (6)
  1. BETASERON [Suspect]
     Indication: RELAPSING-REMITTING MULTIPLE SCLEROSIS
     Route: 058
     Dates: start: 20040101, end: 20070902
  2. BETASERON [Suspect]
     Route: 058
     Dates: start: 20070101
  3. BETASERON [Suspect]
     Route: 058
     Dates: start: 20020103
  4. PROZAC [Concomitant]
  5. PROVIGIL [Concomitant]
  6. ABILIFY [Concomitant]

REACTIONS (4)
  - GAIT DISTURBANCE [None]
  - MULTIPLE SCLEROSIS [None]
  - TRANSIENT ISCHAEMIC ATTACK [None]
  - UNEVALUABLE EVENT [None]
